FAERS Safety Report 14498117 (Version 1)
Quarter: 2018Q1

REPORT INFORMATION
  Report Type: Spontaneous
  Country: US (occurrence: US)
  Receive Date: 20180207
  Receipt Date: 20180207
  Transmission Date: 20180509
  Serious: Yes (Other)
  Sender: FDA-Public Use
  Company Number: US-PFIZER INC-2018040727

PATIENT
  Age: 62 Year
  Sex: Female
  Weight: 51.26 kg

DRUGS (5)
  1. CYMBALTA [Suspect]
     Active Substance: DULOXETINE HYDROCHLORIDE
     Indication: DEPRESSION
     Dosage: 6 MG, 1X/DAY AT NIGHT
     Route: 048
     Dates: end: 20171231
  2. EFFEXOR XR [Suspect]
     Active Substance: VENLAFAXINE HYDROCHLORIDE
     Dosage: 150 MG, DAILY (37.5MG CAPSULES, 2 CAPSULES IN THE MORNING AND 2 CAPSULES IN AFTERNOON)
     Route: 048
  3. EFFEXOR XR [Suspect]
     Active Substance: VENLAFAXINE HYDROCHLORIDE
     Indication: DEPRESSION
     Dosage: 112.5 MG, DAILY (2 CAPSULES (75MG) IN THE MORNING, 1 CAPSULE (37.5MG) IN THE EVENINGY)
     Route: 048
  4. EFFEXOR XR [Suspect]
     Active Substance: VENLAFAXINE HYDROCHLORIDE
     Dosage: 112.5 MG, DAILY (2 CAPSULES (75MG) IN THE MORNING, 1 CAPSULE (37.5MG) IN THE EVENING)
     Route: 048
     Dates: start: 20180101
  5. CENTRUM WOMEN [Concomitant]
     Active Substance: VITAMINS
     Indication: MOUTH ULCERATION
     Dosage: 1 DF, DAILY
     Route: 048

REACTIONS (11)
  - Off label use [Not Recovered/Not Resolved]
  - Depression [Not Recovered/Not Resolved]
  - Cognitive disorder [Not Recovered/Not Resolved]
  - Malaise [Not Recovered/Not Resolved]
  - Asthenia [Not Recovered/Not Resolved]
  - Condition aggravated [Not Recovered/Not Resolved]
  - Intentional product misuse [Not Recovered/Not Resolved]
  - Suicidal ideation [Not Recovered/Not Resolved]
  - Decreased appetite [Not Recovered/Not Resolved]
  - Hyperhidrosis [Not Recovered/Not Resolved]
  - Drug ineffective [Not Recovered/Not Resolved]

NARRATIVE: CASE EVENT DATE: 201801
